FAERS Safety Report 21764886 (Version 1)
Quarter: 2022Q4

REPORT INFORMATION
  Report Type: Report from Study
  Country: US (occurrence: US)
  Receive Date: 20221222
  Receipt Date: 20221222
  Transmission Date: 20230113
  Serious: No
  Sender: FDA-Public Use
  Company Number: US-ABBVIE-4200333

PATIENT
  Age: 38 Year

DRUGS (1)
  1. HUMIRA [Suspect]
     Active Substance: ADALIMUMAB
     Indication: Ankylosing spondylitis
     Route: 058

REACTIONS (6)
  - Skin laceration [Unknown]
  - Orchitis [Recovering/Resolving]
  - COVID-19 [Unknown]
  - Autoimmune disorder [Unknown]
  - Therapeutic response shortened [Unknown]
  - Impaired healing [Unknown]

NARRATIVE: CASE EVENT DATE: 20220701
